FAERS Safety Report 24570344 (Version 3)
Quarter: 2024Q4

REPORT INFORMATION
  Report Type: Report from Study
  Country: CN (occurrence: CN)
  Receive Date: 20241031
  Receipt Date: 20241114
  Transmission Date: 20250114
  Serious: Yes (Hospitalization)
  Sender: EISAI
  Company Number: CN-Eisai-EC-2024-177499

PATIENT
  Age: 47 Year
  Sex: Female
  Weight: 62 kg

DRUGS (8)
  1. ERIBULIN [Suspect]
     Active Substance: ERIBULIN
     Indication: Breast cancer
     Route: 042
     Dates: start: 20240928, end: 20240928
  2. ERIBULIN [Suspect]
     Active Substance: ERIBULIN
     Route: 042
     Dates: start: 20241012, end: 20241012
  3. CAPECITABINE [Suspect]
     Active Substance: CAPECITABINE
     Indication: Breast cancer
     Dosage: D1-D14 EVERY 21 DAYS
     Route: 048
     Dates: start: 20240928, end: 20241007
  4. CAPECITABINE [Suspect]
     Active Substance: CAPECITABINE
     Dosage: D1-D14 EVERY 21 DAYS
     Route: 048
     Dates: start: 20241010, end: 20241011
  5. RIVAROXABAN [Concomitant]
     Active Substance: RIVAROXABAN
     Indication: Thrombosis prophylaxis
     Route: 048
     Dates: start: 20241009
  6. FERRIC POLYSACCHARIDE COMPLEX [Concomitant]
     Active Substance: FERRIC POLYSACCHARIDE COMPLEX
     Indication: Anaemia
     Route: 048
     Dates: start: 20240930
  7. LEUCOGEN [Concomitant]
     Active Substance: LEUCOGEN
     Indication: Prophylaxis
     Dates: start: 20241010
  8. Whole protein enteral nutrition [Concomitant]
     Indication: Nutritional supplementation
     Dates: start: 20240930

REACTIONS (2)
  - Anaemia [Recovered/Resolved]
  - Oedema peripheral [Recovered/Resolved]

NARRATIVE: CASE EVENT DATE: 20241022
